FAERS Safety Report 15766715 (Version 1)
Quarter: 2018Q4

REPORT INFORMATION
  Report Type: Report from Study
  Country: US (occurrence: US)
  Receive Date: 20181227
  Receipt Date: 20181227
  Transmission Date: 20190205
  Serious: Yes (Hospitalization, Other)
  Sender: FDA-Public Use
  Company Number: US-SAKK-2018SA201275AA

PATIENT
  Age: 67 Year
  Sex: Female

DRUGS (3)
  1. INSULIN GLARGINE [Suspect]
     Active Substance: INSULIN GLARGINE
     Dosage: 60 U, BID
     Route: 058
  2. INSULIN GLARGINE [Suspect]
     Active Substance: INSULIN GLARGINE
     Indication: TYPE 2 DIABETES MELLITUS
     Dosage: 54 U, BID
     Route: 058
     Dates: start: 201612
  3. INSULIN GLULISINE [Suspect]
     Active Substance: INSULIN GLULISINE
     Indication: TYPE 2 DIABETES MELLITUS
     Dosage: 18 U, BID
     Route: 058

REACTIONS (10)
  - Cerebral artery embolism [Recovered/Resolved]
  - Anaemia [Recovered/Resolved]
  - Gait disturbance [Recovered/Resolved]
  - Neuropathy peripheral [Unknown]
  - Blood glucose abnormal [Recovered/Resolved]
  - Pulmonary embolism [Recovered/Resolved]
  - Memory impairment [Recovered/Resolved]
  - Blood disorder [Recovered/Resolved]
  - Blood pressure abnormal [Recovered/Resolved]
  - Product use issue [Unknown]

NARRATIVE: CASE EVENT DATE: 201612
